FAERS Safety Report 10097228 (Version 2)
Quarter: 2014Q2

REPORT INFORMATION
  Report Type: Report from Study
  Country: JP (occurrence: JP)
  Receive Date: 20140422
  Receipt Date: 20140423
  Transmission Date: 20141212
  Serious: Yes (Life-Threatening, Other)
  Sender: FDA-Public Use
  Company Number: PHHY2014JP048207

PATIENT
  Age: 33 Year
  Sex: Female

DRUGS (29)
  1. LEPONEX / CLOZARIL [Suspect]
     Indication: SCHIZOPHRENIA, CATATONIC TYPE
     Dosage: 12.5 MG, DAILY
     Route: 048
     Dates: start: 20120524, end: 20120524
  2. LEPONEX / CLOZARIL [Suspect]
     Dosage: 25 MG, DAILY
     Route: 048
     Dates: start: 20120525, end: 20120527
  3. LEPONEX / CLOZARIL [Suspect]
     Dosage: 50 MG, DAILY
     Route: 048
     Dates: start: 20120528, end: 20120530
  4. LEPONEX / CLOZARIL [Suspect]
     Dosage: 75 MG, DAILY
     Route: 048
     Dates: start: 20120531, end: 20120601
  5. LEPONEX / CLOZARIL [Suspect]
     Dosage: 100 MG, DAILY
     Route: 048
     Dates: start: 20120602, end: 20120603
  6. LEPONEX / CLOZARIL [Suspect]
     Dosage: 125 MG, DAILY
     Route: 048
     Dates: start: 20120604, end: 20120606
  7. LEPONEX / CLOZARIL [Suspect]
     Dosage: 150 MG, DAILY
     Route: 048
     Dates: start: 20120607, end: 20120609
  8. LEPONEX / CLOZARIL [Suspect]
     Dosage: 175 MG, DAILY
     Route: 048
     Dates: start: 20120610, end: 20120612
  9. LEPONEX / CLOZARIL [Suspect]
     Dosage: 200 MG, DAILY
     Route: 048
     Dates: start: 20120613, end: 20120620
  10. LEPONEX / CLOZARIL [Suspect]
     Dosage: 250 MG, DAILY
     Route: 048
     Dates: start: 20120621, end: 20120627
  11. LEPONEX / CLOZARIL [Suspect]
     Dosage: 300 MG, DAILY
     Route: 048
     Dates: start: 20120628, end: 20120711
  12. LEPONEX / CLOZARIL [Suspect]
     Dosage: 350 MG, DAILY
     Route: 048
     Dates: start: 20120712, end: 20120808
  13. LEPONEX / CLOZARIL [Suspect]
     Dosage: 400 MG, DAILY
     Route: 048
     Dates: start: 20120809, end: 20120909
  14. LEPONEX / CLOZARIL [Suspect]
     Dosage: 500 MG, DAILY
     Route: 048
     Dates: start: 20120910, end: 20120918
  15. LEPONEX / CLOZARIL [Suspect]
     Dosage: 600 MG, DAILY
     Route: 048
     Dates: start: 20120919, end: 20121031
  16. LEPONEX / CLOZARIL [Suspect]
     Dosage: 500 MG, DAILY
     Route: 048
     Dates: start: 20121101, end: 20121107
  17. LEPONEX / CLOZARIL [Suspect]
     Dosage: 400 MG, DAILY
     Route: 048
     Dates: start: 20121108, end: 20121114
  18. LEPONEX / CLOZARIL [Suspect]
     Dosage: 350 MG,DAILY
     Route: 048
     Dates: start: 20121115, end: 20121121
  19. LEPONEX / CLOZARIL [Suspect]
     Dosage: 300 MG, DAILY
     Route: 048
     Dates: start: 20121122, end: 20140310
  20. DIAZEPAM [Concomitant]
     Indication: SCHIZOPHRENIA, CATATONIC TYPE
     Dosage: 15 MG, UNK
     Route: 048
     Dates: start: 20120917
  21. DIAZEPAM [Concomitant]
     Dosage: 20 MG, UNK
     Route: 048
  22. ALPRAZOLAM [Concomitant]
     Indication: SCHIZOPHRENIA, CATATONIC TYPE
     Dosage: 1.2 MG, UNK
     Route: 048
     Dates: start: 20120213, end: 20121003
  23. LIMAS [Concomitant]
     Indication: SCHIZOPHRENIA, CATATONIC TYPE
     Dosage: 400 MG, UNK
     Route: 048
     Dates: start: 20120329, end: 20120718
  24. SERENACE [Concomitant]
     Indication: SCHIZOPHRENIA, CATATONIC TYPE
     Dosage: 2 MG, UNK
     Route: 048
     Dates: start: 20121002
  25. SERENACE [Concomitant]
     Dosage: 4 MG, UNK
     Route: 048
  26. SERENACE [Concomitant]
     Dosage: 9 MG, UNK
     Route: 048
  27. SERENACE [Concomitant]
     Dosage: 12 MG, UNK
     Route: 048
  28. SERENACE [Concomitant]
     Dosage: 13.5 MG, UNK
     Route: 048
  29. SERENACE [Concomitant]
     Dosage: 15 MG, UNK
     Route: 048

REACTIONS (4)
  - Cardio-respiratory arrest [Unknown]
  - Heart rate increased [Unknown]
  - White blood cell count increased [Unknown]
  - Blood glucose increased [Unknown]
